FAERS Safety Report 5329014-4 (Version None)
Quarter: 2007Q2

REPORT INFORMATION
  Report Type: 
  Country: None (occurrence: None)
  Receive Date: 20070518
  Receipt Date: 20070507
  Transmission Date: 20071010
  Serious: Yes (Death, Other)
  Sender: FDA-Public Use
  Company Number: US-PFIZER INC-2005041857

PATIENT
  Sex: Male

DRUGS (5)
  1. NEURONTIN [Suspect]
     Indication: CONVULSION
  2. NEURONTIN [Suspect]
  3. PHENOBARBITAL TAB [Suspect]
  4. VALIUM [Suspect]
  5. LORTAB [Suspect]

REACTIONS (4)
  - COMA [None]
  - COMPLETED SUICIDE [None]
  - DRUG INEFFECTIVE [None]
  - MULTIPLE DRUG OVERDOSE [None]
